FAERS Safety Report 21177151 (Version 1)
Quarter: 2022Q3

REPORT INFORMATION
  Report Type: Spontaneous
  Country: US (occurrence: US)
  Receive Date: 20220805
  Receipt Date: 20220805
  Transmission Date: 20221027
  Serious: No
  Sender: FDA-Public Use
  Company Number: US-APOTEX-2022AP008868

PATIENT
  Age: 69 Year
  Sex: Male

DRUGS (19)
  1. ARIPIPRAZOLE [Interacting]
     Active Substance: ARIPIPRAZOLE
     Indication: Major depression
     Dosage: 10 MILLIGRAM, QD
     Route: 065
  2. AMLODIPINE [Interacting]
     Active Substance: AMLODIPINE BESYLATE
     Indication: Hypertension
     Dosage: 2.5 MILLIGRAM, QD
     Route: 065
  3. OMEPRAZOLE [Interacting]
     Active Substance: OMEPRAZOLE
     Indication: Gastrooesophageal reflux disease
     Dosage: 20 MILLIGRAM, QD
     Route: 065
  4. GABAPENTIN [Interacting]
     Active Substance: GABAPENTIN
     Indication: Neuropathy peripheral
     Dosage: 800 MILLIGRAM, TID
     Route: 065
  5. MEMANTINE [Interacting]
     Active Substance: MEMANTINE
     Indication: Cognitive disorder
     Dosage: 5 MILLIGRAM, BID
     Route: 065
  6. METOPROLOL [Interacting]
     Active Substance: METOPROLOL
     Indication: Hypertension
     Dosage: 50 MILLIGRAM, QD
     Route: 065
  7. ESCITALOPRAM [Interacting]
     Active Substance: ESCITALOPRAM OXALATE
     Indication: Major depression
     Dosage: 20 MILLIGRAM, QD
     Route: 065
  8. PRAMIPEXOLE [Interacting]
     Active Substance: PRAMIPEXOLE
     Indication: Restless legs syndrome
     Dosage: 125 MICROGRAM, Q.H.S.
     Route: 065
  9. BUPROPION [Suspect]
     Active Substance: BUPROPION
     Indication: Major depression
     Dosage: 150 MILLIGRAM, BID
     Route: 065
  10. ALBUTEROL [Concomitant]
     Active Substance: ALBUTEROL
     Indication: Chronic obstructive pulmonary disease
     Dosage: 90 MICROGRAM, Q.6H, 1 PUFF AS REQUIRED
     Route: 065
  11. FLUTICASONE;UMECLIDINIUM;VILANTEROL [Concomitant]
     Indication: Chronic obstructive pulmonary disease
     Dosage: 1 DOSAGE FORM, QD (100/62.5/25 MCG)
     Route: 065
  12. FLUTICASONE;UMECLIDINIUM;VILANTEROL [Concomitant]
     Indication: Cognitive disorder
  13. FAMOTIDINE [Concomitant]
     Active Substance: FAMOTIDINE
     Indication: Gastrooesophageal reflux disease
     Dosage: 40 MILLIGRAM, QD
     Route: 065
  14. LISINOPRIL [Concomitant]
     Active Substance: LISINOPRIL
     Indication: Hypertension
     Dosage: 5 MILLIGRAM, QD
     Route: 065
  15. ASPIRIN [Concomitant]
     Active Substance: ASPIRIN
     Indication: Myocardial ischaemia
     Dosage: 81 MILLIGRAM, QD
     Route: 065
  16. ISOSORBIDE MONONITRATE [Concomitant]
     Active Substance: ISOSORBIDE MONONITRATE
     Indication: Myocardial ischaemia
     Dosage: 30 MILLIGRAM, QD
     Route: 065
  17. NITROGLYCERIN [Concomitant]
     Active Substance: NITROGLYCERIN
     Indication: Myocardial ischaemia
     Dosage: 0.4 MILLIGRAM, PRN ANGINA
     Route: 065
  18. ROSUVASTATIN [Concomitant]
     Active Substance: ROSUVASTATIN
     Indication: Myocardial ischaemia
     Dosage: 40 MILLIGRAM, QD
     Route: 065
  19. CANAGLIFLOZIN;METFORMIN [Concomitant]
     Indication: Type 2 diabetes mellitus
     Dosage: UNK UNK, QD ( 150 MG/1000 MG)
     Route: 065

REACTIONS (6)
  - Disturbance in attention [Unknown]
  - Drug interaction [Unknown]
  - Multiple drug therapy [Unknown]
  - Fatigue [Unknown]
  - Sedation [Unknown]
  - Dizziness [Unknown]
